FAERS Safety Report 16261245 (Version 1)
Quarter: 2019Q2

REPORT INFORMATION
  Report Type: Spontaneous
  Country: US (occurrence: US)
  Receive Date: 20190501
  Receipt Date: 20190501
  Transmission Date: 20190711
  Serious: Yes (Other)
  Sender: FDA-Public Use
  Company Number: US-SA-2019SA117329

PATIENT
  Age: 59 Year
  Sex: Male

DRUGS (41)
  1. EPHEDRINE. [Concomitant]
     Active Substance: EPHEDRINE
  2. PARACETAMOLUM [Concomitant]
     Active Substance: ACETAMINOPHEN
  3. ALPRAZOLAMUM [Concomitant]
  4. PANTOPRAZOLUM [Concomitant]
     Active Substance: PANTOPRAZOLE
  5. METHYLPREDNISOLONE. [Concomitant]
     Active Substance: METHYLPREDNISOLONE
  6. PREDNISONE. [Concomitant]
     Active Substance: PREDNISONE
  7. PROPOFOLUM [Concomitant]
     Active Substance: PROPOFOL
  8. OMEPRAZOLE. [Concomitant]
     Active Substance: OMEPRAZOLE
  9. GLUCOSE [Concomitant]
     Active Substance: DEXTROSE
  10. DEXMEDETOMIDINUM [Concomitant]
  11. KETOPROFENUM [Concomitant]
  12. COLECALCIFEROLUM [Concomitant]
  13. EZETIMIBUM [Concomitant]
  14. CALTRATE [Concomitant]
     Active Substance: CALCIUM CARBONATE
  15. METAMIZOLUM [Concomitant]
  16. CALCITRIOL. [Concomitant]
     Active Substance: CALCITRIOL
  17. SUFENTANIL [Concomitant]
     Active Substance: SUFENTANIL
  18. NADROPARIN [Concomitant]
     Active Substance: NADROPARIN
  19. SEVELAMER [Concomitant]
     Active Substance: SEVELAMER
  20. BISEPTOL [Concomitant]
     Active Substance: SULFAMETHOXAZOLE\TRIMETHOPRIM
  21. METOCLOPRAMIDE. [Concomitant]
     Active Substance: METOCLOPRAMIDE
  22. ACETYLSALICYLIC ACID [Concomitant]
     Active Substance: ASPIRIN
  23. FUROSEMIDE. [Concomitant]
     Active Substance: FUROSEMIDE
  24. ATORVASTATINUM [Concomitant]
  25. DESFLURANE. [Concomitant]
     Active Substance: DESFLURANE
  26. CISATRACURIUM. [Concomitant]
     Active Substance: CISATRACURIUM
  27. PLASMA-LYTE [Concomitant]
     Active Substance: ELECTROLYTES NOS
  28. CIPROFLOXACIN. [Concomitant]
     Active Substance: CIPROFLOXACIN
  29. ALBUMIN [Concomitant]
     Active Substance: ALBUMIN HUMAN
  30. NOREPINEPHRINUM [Concomitant]
  31. INSULIN [Concomitant]
     Active Substance: INSULIN NOS
  32. MIDAZOLAM [Concomitant]
     Active Substance: MIDAZOLAM HYDROCHLORIDE
  33. PARICALCITOL. [Concomitant]
     Active Substance: PARICALCITOL
  34. METOPROLOL. [Concomitant]
     Active Substance: METOPROLOL
  35. INSULINUM HUMANUM [Concomitant]
  36. THYMOGLOBULIN [Suspect]
     Active Substance: LAPINE T-LYMPHOCYTE IMMUNE GLOBULIN
  37. PANTOPRAZOLE [Concomitant]
     Active Substance: PANTOPRAZOLE
  38. SIMETHICONUM [Concomitant]
  39. VENOFER [Concomitant]
     Active Substance: IRON SUCROSE
  40. EPOETIN BETA [Concomitant]
     Active Substance: ERYTHROPOIETIN
  41. TACROLIMUS. [Concomitant]
     Active Substance: TACROLIMUS

REACTIONS (1)
  - Renal transplant failure [Recovered/Resolved with Sequelae]
